FAERS Safety Report 23213916 (Version 4)
Quarter: 2024Q1

REPORT INFORMATION
  Report Type: Report from Study
  Country: US (occurrence: US)
  Receive Date: 20231121
  Receipt Date: 20240322
  Transmission Date: 20240410
  Serious: No
  Sender: FDA-Public Use
  Company Number: US-ALXN-A202313902

PATIENT
  Sex: Male
  Weight: 49.887 kg

DRUGS (3)
  1. ULTOMIRIS [Suspect]
     Active Substance: RAVULIZUMAB-CWVZ
     Indication: Myasthenia gravis
     Dosage: UNK, EVERY 8 WEEK
     Route: 065
     Dates: start: 20231017
  2. AMITRIPTYLINE [Suspect]
     Active Substance: AMITRIPTYLINE
     Indication: Product used for unknown indication
     Dosage: 0.5 DOSAGE FORM, (HALF TABLET), QOD
     Route: 065
  3. PREDNISONE [Concomitant]
     Active Substance: PREDNISONE
     Indication: Product used for unknown indication
     Dosage: UNK
     Route: 065

REACTIONS (15)
  - Drug ineffective [Unknown]
  - Dysphagia [Unknown]
  - Speech disorder [Not Recovered/Not Resolved]
  - Weight decreased [Unknown]
  - Muscular weakness [Unknown]
  - Dropped head syndrome [Unknown]
  - Neck pain [Unknown]
  - Peroneal nerve palsy [Recovering/Resolving]
  - Peripheral coldness [Unknown]
  - Skin discolouration [Unknown]
  - Muscle disorder [Unknown]
  - Nocturnal dyspnoea [Unknown]
  - Productive cough [Unknown]
  - Hypersomnia [Unknown]
  - Asthenia [Unknown]

NARRATIVE: CASE EVENT DATE: 20220101
